FAERS Safety Report 15892029 (Version 2)
Quarter: 2019Q1

REPORT INFORMATION
  Report Type: Report from Study
  Country: IT (occurrence: IT)
  Receive Date: 20190130
  Receipt Date: 20190307
  Transmission Date: 20190417
  Serious: Yes (Hospitalization)
  Sender: FDA-Public Use
  Company Number: IT-MYLANLABS-2019M1008429

PATIENT
  Age: 24 Year
  Sex: Female
  Weight: 50 kg

DRUGS (3)
  1. VOLTFAST                           /00372302/ [Suspect]
     Active Substance: DICLOFENAC SODIUM
     Indication: TOOTHACHE
     Dosage: 250 MILLIGRAM, TOTAL
     Route: 048
     Dates: start: 20180626, end: 20180626
  2. AUGMENTIN [Suspect]
     Active Substance: AMOXICILLIN\CLAVULANATE POTASSIUM
     Indication: TOOTHACHE
     Dosage: 7 GRAM, TOTAL
     Route: 048
     Dates: start: 20180626, end: 20180626
  3. BRUFEN [Suspect]
     Active Substance: IBUPROFEN
     Indication: TOOTHACHE
     Dosage: 5400 MILLIGRAM, TOTAL
     Route: 048
     Dates: start: 20180626, end: 20180626

REACTIONS (2)
  - Abdominal pain upper [Recovering/Resolving]
  - Medication error [Recovering/Resolving]

NARRATIVE: CASE EVENT DATE: 20180626
